FAERS Safety Report 17442578 (Version 1)
Quarter: 2020Q1

REPORT INFORMATION
  Report Type: Spontaneous
  Country: CH (occurrence: CH)
  Receive Date: 20200220
  Receipt Date: 20200220
  Transmission Date: 20200409
  Serious: Yes (Life-Threatening, Hospitalization, Other)
  Sender: FDA-Public Use
  Company Number: CH-BEH-2020113320

PATIENT
  Age: 15 Year
  Sex: Male

DRUGS (1)
  1. PRIVIGEN [Suspect]
     Active Substance: HUMAN IMMUNOGLOBULIN G
     Indication: HASHIMOTO^S ENCEPHALOPATHY
     Dosage: 2 GRAM PER KILOGRAM, QD
     Route: 042
     Dates: start: 20200117, end: 20200121

REACTIONS (5)
  - Product use in unapproved indication [Recovering/Resolving]
  - Coombs direct test positive [Recovering/Resolving]
  - Haemolytic anaemia [Recovering/Resolving]
  - Haemoglobin decreased [Recovering/Resolving]
  - No adverse event [Recovering/Resolving]

NARRATIVE: CASE EVENT DATE: 20200124
